FAERS Safety Report 8470329-9 (Version None)
Quarter: 2012Q2

REPORT INFORMATION
  Report Type: 
  Country: None (occurrence: None)
  Receive Date: 20120627
  Receipt Date: 20120622
  Transmission Date: 20120825
  Serious: Yes (Hospitalization)
  Sender: FDA-Public Use
  Company Number: IT-SHIRE-SPV1-2012-00484

PATIENT
  Sex: Female

DRUGS (1)
  1. FOSRENOL [Suspect]
     Indication: PRODUCT USED FOR UNKNOWN INDICATION
     Dosage: 4 DF, 1X/DAY:QD
     Route: 048
     Dates: start: 20120104, end: 20120110

REACTIONS (5)
  - RECTAL HAEMORRHAGE [None]
  - NAUSEA [None]
  - ABDOMINAL PAIN [None]
  - DYSPEPSIA [None]
  - VOMITING [None]
